FAERS Safety Report 13768543 (Version 2)
Quarter: 2017Q3

REPORT INFORMATION
  Report Type: Report from Study
  Country: None (occurrence: IL)
  Receive Date: 20170719
  Receipt Date: 20170721
  Transmission Date: 20171127
  Serious: Yes (Life-Threatening, Other)
  Sender: FDA-Public Use
  Company Number: IL-ABBVIE-17P-082-2042358-00

PATIENT
  Age: 57 Year
  Sex: Male

DRUGS (2)
  1. DUODOPA [Suspect]
     Active Substance: CARBIDOPA\LEVODOPA
     Route: 050
  2. DUODOPA [Suspect]
     Active Substance: CARBIDOPA\LEVODOPA
     Indication: PARKINSON^S DISEASE
     Dosage: CURRENT MORNING 8 ML, CURRENT FIXED RATE- 2.4 ML/HOUR, CURRENT EXTRA DOSE- 1 ML
     Route: 050

REACTIONS (4)
  - Mobility decreased [Unknown]
  - Chest pain [Not Recovered/Not Resolved]
  - Pulmonary embolism [Recovering/Resolving]
  - Hyperhidrosis [Not Recovered/Not Resolved]

NARRATIVE: CASE EVENT DATE: 20170717
